FAERS Safety Report 11376162 (Version 2)
Quarter: 2015Q3

REPORT INFORMATION
  Report Type: Spontaneous
  Country: US (occurrence: US)
  Receive Date: 20150813
  Receipt Date: 20150901
  Transmission Date: 20151125
  Serious: No
  Sender: FDA-Public Use
  Company Number: US-VERTEX PHARMACEUTICALS-2015-003157

PATIENT
  Age: 25 Year
  Sex: Female
  Weight: 51 kg

DRUGS (24)
  1. NOVOLOG [Concomitant]
     Active Substance: INSULIN ASPART
  2. ACTIGALL [Concomitant]
     Active Substance: URSODIOL
  3. CALCIUM [Concomitant]
     Active Substance: CALCIUM
  4. XOPENEX [Concomitant]
     Active Substance: LEVALBUTEROL HYDROCHLORIDE
  5. MINOCYCLINE [Concomitant]
     Active Substance: MINOCYCLINE\MINOCYCLINE HYDROCHLORIDE
     Indication: PNEUMONIA
  6. LANTUS [Concomitant]
     Active Substance: INSULIN GLARGINE
  7. PROTONIX [Concomitant]
     Active Substance: PANTOPRAZOLE SODIUM
  8. PULMICORT TURBUHALER [Concomitant]
     Active Substance: BUDESONIDE
  9. FOSAMAX [Concomitant]
     Active Substance: ALENDRONATE SODIUM
  10. SENOKOT [Concomitant]
     Active Substance: SENNOSIDES
  11. VITAMIN D [Concomitant]
     Active Substance: CHOLECALCIFEROL
  12. MEROPENEM. [Concomitant]
     Active Substance: MEROPENEM
     Indication: PNEUMONIA
  13. XOLAIR [Concomitant]
     Active Substance: OMALIZUMAB
  14. CLARITIN [Concomitant]
     Active Substance: LORATADINE
  15. PULMOZYME [Concomitant]
     Active Substance: DORNASE ALFA
  16. PREDNISONE. [Concomitant]
     Active Substance: PREDNISONE
  17. SINGULAIR [Concomitant]
     Active Substance: MONTELUKAST SODIUM
  18. REGLAN [Concomitant]
     Active Substance: METOCLOPRAMIDE HYDROCHLORIDE
  19. VITAMAX [Concomitant]
  20. ORKAMBI [Suspect]
     Active Substance: IVACAFTOR\LUMACAFTOR
     Indication: CYSTIC FIBROSIS
     Dosage: 200 MG/125 MG, BID
     Route: 048
     Dates: start: 20150806, end: 201508
  21. ORKAMBI [Suspect]
     Active Substance: IVACAFTOR\LUMACAFTOR
     Dosage: 200 MG/125 MG, BID
     Route: 048
     Dates: start: 20150817
  22. DEPO-PROVERA [Concomitant]
     Active Substance: MEDROXYPROGESTERONE ACETATE
  23. PANCREASE MT [Concomitant]
     Active Substance: PANCRELIPASE
  24. ZITHROMAX [Concomitant]
     Active Substance: AZITHROMYCIN DIHYDRATE

REACTIONS (1)
  - Dyspnoea [Recovering/Resolving]

NARRATIVE: CASE EVENT DATE: 20150806
